FAERS Safety Report 9261490 (Version 3)
Quarter: 2013Q3

REPORT INFORMATION
  Report Type: Report from Study
  Country: CA (occurrence: CA)
  Receive Date: 20130429
  Receipt Date: 20130822
  Transmission Date: 20140515
  Serious: Yes (Hospitalization, Other)
  Sender: FDA-Public Use
  Company Number: CA-JNJFOC-20130413304

PATIENT
  Sex: Male
  Weight: 75.1 kg

DRUGS (3)
  1. REMICADE [Suspect]
     Indication: UVEITIS
     Route: 042
     Dates: start: 20081208
  2. TYLENOL [Concomitant]
     Indication: PREMEDICATION
     Route: 048
  3. BENADRYL [Concomitant]
     Indication: PREMEDICATION
     Route: 065

REACTIONS (3)
  - Eye injury [Unknown]
  - Blindness unilateral [Unknown]
  - Off label use [Unknown]
